FAERS Safety Report 16660256 (Version 1)
Quarter: 2019Q3

REPORT INFORMATION
  Report Type: Report from Study
  Country: MX (occurrence: MX)
  Receive Date: 20190802
  Receipt Date: 20190802
  Transmission Date: 20191004
  Serious: Yes (Other)
  Sender: FDA-Public Use
  Company Number: MX-ROCHE-2364016

PATIENT
  Age: 48 Year
  Sex: Female

DRUGS (4)
  1. TRASTUZUMAB. [Suspect]
     Active Substance: TRASTUZUMAB
     Indication: HER-2 POSITIVE BREAST CANCER
     Route: 042
  2. OMEPRAZOLE. [Concomitant]
     Active Substance: OMEPRAZOLE
     Indication: DYSPEPSIA
  3. PARACETAMOL [Concomitant]
     Active Substance: ACETAMINOPHEN
     Indication: PAIN
  4. FILGRASTIM [Concomitant]
     Active Substance: FILGRASTIM
     Indication: DECREASED IMMUNE RESPONSIVENESS

REACTIONS (17)
  - Dizziness [Unknown]
  - Hypoaesthesia [Unknown]
  - Gastritis [Unknown]
  - Cough [Unknown]
  - Headache [Unknown]
  - Decreased immune responsiveness [Unknown]
  - Feeling cold [Unknown]
  - Influenza [Unknown]
  - Gingival swelling [Unknown]
  - Pain in extremity [Unknown]
  - Fatigue [Unknown]
  - Alopecia [Unknown]
  - Bone pain [Unknown]
  - Burning sensation [Unknown]
  - Urinary tract infection [Unknown]
  - Madarosis [Unknown]
  - Insomnia [Unknown]
